FAERS Safety Report 12254192 (Version 1)
Quarter: 2016Q2

REPORT INFORMATION
  Report Type: Spontaneous
  Country: BR (occurrence: BR)
  Receive Date: 20160411
  Receipt Date: 20160411
  Transmission Date: 20160815
  Serious: Yes (Hospitalization)
  Sender: FDA-Public Use
  Company Number: BR-JNJFOC-20160408259

PATIENT
  Sex: Female

DRUGS (3)
  1. XARELTO [Suspect]
     Active Substance: RIVAROXABAN
     Indication: THROMBOSIS PROPHYLAXIS
     Route: 048
     Dates: start: 20160320, end: 20160330
  2. XARELTO [Suspect]
     Active Substance: RIVAROXABAN
     Indication: BONE OPERATION
     Route: 048
     Dates: start: 20160320, end: 20160330
  3. LORAZEPAM. [Concomitant]
     Active Substance: LORAZEPAM
     Indication: INSOMNIA
     Route: 048
     Dates: start: 2006

REACTIONS (6)
  - Dysuria [Recovered/Resolved]
  - Dyspnoea [Recovered/Resolved]
  - Pain [Recovered/Resolved]
  - Confusional state [Recovered/Resolved]
  - Off label use [Unknown]
  - Hypersomnia [Recovered/Resolved]
